FAERS Safety Report 19356957 (Version 6)
Quarter: 2021Q3

REPORT INFORMATION
  Report Type: Report from Study
  Country: US (occurrence: US)
  Receive Date: 20210601
  Receipt Date: 20210921
  Transmission Date: 20211014
  Serious: No
  Sender: FDA-Public Use
  Company Number: NVSC2021US116547

PATIENT
  Sex: Female

DRUGS (1)
  1. ENTRESTO [Suspect]
     Active Substance: SACUBITRIL\VALSARTAN
     Indication: PRODUCT USED FOR UNKNOWN INDICATION
     Dosage: 1 DF, BID (24.26 MG, TWICE A DAY)
     Route: 048
     Dates: start: 20210424

REACTIONS (11)
  - Arthralgia [Unknown]
  - Echocardiogram [Unknown]
  - Dyspepsia [Unknown]
  - Weight fluctuation [Unknown]
  - Cough [Unknown]
  - Product dose omission issue [Unknown]
  - Joint injury [Unknown]
  - Ejection fraction [Unknown]
  - Insomnia [Unknown]
  - Electrocardiogram [Unknown]
  - Fatigue [Unknown]
